FAERS Safety Report 4399608-1 (Version None)
Quarter: 2004Q3

REPORT INFORMATION
  Report Type: 
  Country: None (occurrence: None)
  Receive Date: 20040712
  Receipt Date: 20040617
  Transmission Date: 20050211
  Serious: Yes (Hospitalization)
  Sender: FDA-Public Use
  Company Number: B01200300003

PATIENT
  Age: 63 Year
  Sex: Female

DRUGS (5)
  1. OXALIPLATIN [Suspect]
     Indication: COLORECTAL CANCER METASTATIC
     Dosage: 85 MG/M2, Q3W,
     Route: 042
     Dates: start: 20021211, end: 20021112
  2. IRINOTECAN- SOLUTION - 200 MG/M2 [Suspect]
     Indication: COLORECTAL CANCER METASTATIC
     Dosage: 200MG/M2 Q3W
     Route: 042
     Dates: start: 20021211, end: 20021211
  3. MEDROXYPROGESTERONE [Concomitant]
  4. LANSOPRAZOLE [Concomitant]
  5. WARFARIN SODIUM [Concomitant]

REACTIONS (1)
  - FEBRILE NEUTROPENIA [None]
